FAERS Safety Report 23659677 (Version 2)
Quarter: 2024Q1

REPORT INFORMATION
  Report Type: Spontaneous
  Country: BE (occurrence: BE)
  Receive Date: 20240321
  Receipt Date: 20240327
  Transmission Date: 20240410
  Serious: Yes (Other)
  Sender: FDA-Public Use
  Company Number: None

PATIENT
  Age: 22 Year
  Sex: Male

DRUGS (4)
  1. EFFEXOR XR [Suspect]
     Active Substance: VENLAFAXINE HYDROCHLORIDE
     Indication: Depression
     Dosage: PER MONTH, TREATMENT INITIATED AFTER 1 WEEK OF EFEXOR 37,5 MG
     Route: 065
  2. EFFEXOR XR [Suspect]
     Active Substance: VENLAFAXINE HYDROCHLORIDE
     Indication: Depression
     Dosage: QW, INITIATED AFTER TREATMENT OF HELICOBACTER PYLORI, END OF JAN/ BIGINNING OF FEB DURING 1 WEEK
     Route: 065
  3. TRAZODONE [Suspect]
     Active Substance: TRAZODONE HYDROCHLORIDE
     Indication: Sleep disorder
     Dosage: QW, ONE WEEK DURING TREATMENT WITH EFEXOR 75 MG
     Route: 065
  4. Pantomed [Concomitant]
     Dosage: 2 DOSAGE FORM, QD
     Route: 065
     Dates: start: 20230612

REACTIONS (3)
  - Intentional self-injury [Not Recovered/Not Resolved]
  - Suicidal ideation [Not Recovered/Not Resolved]
  - Fatigue [Not Recovered/Not Resolved]
